FAERS Safety Report 8169495-4 (Version None)
Quarter: 2012Q1

REPORT INFORMATION
  Report Type: 
  Country: None (occurrence: None)
  Receive Date: 20120228
  Receipt Date: 20120214
  Transmission Date: 20120608
  Serious: Yes (Other)
  Sender: FDA-Public Use
  Company Number: US-RANBAXY-2012US-53006

PATIENT

DRUGS (5)
  1. IBUPROFEN (ADVIL) [Suspect]
     Indication: PAIN IN EXTREMITY
     Dosage: UNK
     Route: 065
  2. IBUPROFEN (ADVIL) [Suspect]
  3. ATORVASTATIN [Suspect]
     Indication: HYPERLIPIDAEMIA
     Dosage: 20 MG, QD
     Route: 048
     Dates: start: 20111230, end: 20120124
  4. IBUPROFEN (ADVIL) [Suspect]
  5. DIOVAN [Concomitant]
     Indication: PRODUCT USED FOR UNKNOWN INDICATION
     Dosage: UNK
     Route: 065

REACTIONS (4)
  - LIMB DISCOMFORT [None]
  - FATIGUE [None]
  - PAIN IN EXTREMITY [None]
  - ASTHENIA [None]
